FAERS Safety Report 4788137-9 (Version None)
Quarter: 2005Q4

REPORT INFORMATION
  Report Type: 
  Country: None (occurrence: None)
  Receive Date: 20051005
  Receipt Date: 20050927
  Transmission Date: 20060501
  Serious: Yes (Death, Hospitalization, Other)
  Sender: FDA-Public Use
  Company Number: US-JNJFOC-20040400097

PATIENT
  Age: 33 Year
  Sex: Male

DRUGS (7)
  1. DURAGESIC-100 [Suspect]
     Route: 048
  2. DURAGESIC-100 [Suspect]
     Route: 048
  3. DURAGESIC-100 [Suspect]
     Route: 048
  4. FENTANYL [Suspect]
     Route: 042
  5. MIDAZOLAM [Concomitant]
     Route: 042
  6. PROPOFOL [Concomitant]
     Route: 042
  7. MORPHINE [Concomitant]
     Route: 042

REACTIONS (7)
  - APALLIC SYNDROME [None]
  - BRADYCARDIA [None]
  - CLONIC CONVULSION [None]
  - INTENTIONAL DRUG MISUSE [None]
  - LOSS OF CONSCIOUSNESS [None]
  - OVERDOSE [None]
  - SURGERY [None]
